FAERS Safety Report 4641550-2 (Version None)
Quarter: 2005Q2

REPORT INFORMATION
  Report Type: 
  Country: None (occurrence: None)
  Receive Date: 20050421
  Receipt Date: 20050411
  Transmission Date: 20051028
  Serious: Yes (Hospitalization)
  Sender: FDA-Public Use
  Company Number: CH-AMGEN-UK124411

PATIENT
  Sex: Male
  Weight: 75.5 kg

DRUGS (3)
  1. NEUPOGEN [Suspect]
     Indication: PERIPHERAL BLOOD STEM CELL APHERESIS
     Route: 058
     Dates: start: 20050325, end: 20050401
  2. NAVELBINE [Suspect]
     Route: 042
     Dates: start: 20050322, end: 20050322
  3. DAFALGAN [Concomitant]
     Route: 042
     Dates: start: 20050327, end: 20050401

REACTIONS (5)
  - ABDOMINAL PAIN [None]
  - CONSTIPATION [None]
  - FLATULENCE [None]
  - INFREQUENT BOWEL MOVEMENTS [None]
  - THERAPY NON-RESPONDER [None]
